FAERS Safety Report 14817258 (Version 4)
Quarter: 2019Q1

REPORT INFORMATION
  Report Type: Report from Study
  Country: CA (occurrence: CA)
  Receive Date: 20180426
  Receipt Date: 20190122
  Transmission Date: 20190417
  Serious: Yes (Other)
  Sender: FDA-Public Use
  Company Number: PHHY2018CA063243

PATIENT
  Sex: Female

DRUGS (5)
  1. COSENTYX [Suspect]
     Active Substance: SECUKINUMAB
     Dosage: 150 MG, QW
     Route: 058
     Dates: start: 20180412
  2. MELOXICAM. [Concomitant]
     Active Substance: MELOXICAM
     Indication: PRODUCT USED FOR UNKNOWN INDICATION
     Dosage: 1 DF (15MG), QD
     Route: 048
     Dates: start: 201801
  3. COSENTYX [Suspect]
     Active Substance: SECUKINUMAB
     Indication: ANKYLOSING SPONDYLITIS
     Dosage: 150 MG, QW
     Route: 058
     Dates: start: 20180329
  4. COSENTYX [Suspect]
     Active Substance: SECUKINUMAB
     Dosage: 300 MG, QMO
     Route: 058
     Dates: start: 20181226
  5. COSENTYX [Suspect]
     Active Substance: SECUKINUMAB
     Dosage: 150 MG, QMO
     Route: 058
     Dates: start: 20180826

REACTIONS (15)
  - Arthralgia [Unknown]
  - Mobility decreased [Unknown]
  - Myalgia [Unknown]
  - Dermatitis allergic [Unknown]
  - Fibromyalgia [Unknown]
  - Pain [Recovering/Resolving]
  - Neck pain [Not Recovered/Not Resolved]
  - Headache [Unknown]
  - Sacroiliitis [Unknown]
  - Foot fracture [Unknown]
  - Gait disturbance [Unknown]
  - Muscle tightness [Not Recovered/Not Resolved]
  - Paraesthesia [Unknown]
  - Axial spondyloarthritis [Recovering/Resolving]
  - Back pain [Unknown]
